FAERS Safety Report 21393484 (Version 1)
Quarter: 2022Q3

REPORT INFORMATION
  Report Type: Report from Study
  Country: FR (occurrence: FR)
  Receive Date: 20220929
  Receipt Date: 20220929
  Transmission Date: 20221026
  Serious: Yes (Other)
  Sender: FDA-Public Use
  Company Number: FR-BRISTOL-MYERS SQUIBB COMPANY-2022-112639

PATIENT
  Age: 77 Year
  Sex: Male

DRUGS (2)
  1. NIVOLUMAB [Suspect]
     Active Substance: NIVOLUMAB
     Indication: Renal cancer
     Route: 065
     Dates: start: 20210520
  2. Diprosalic enstilar xemose [Concomitant]
     Indication: Product used for unknown indication
     Route: 065

REACTIONS (2)
  - Aortic aneurysm [Recovering/Resolving]
  - Psoriasis [Recovered/Resolved]

NARRATIVE: CASE EVENT DATE: 20220304
